FAERS Safety Report 16184827 (Version 1)
Quarter: 2019Q2

REPORT INFORMATION
  Report Type: Spontaneous
  Country: US (occurrence: US)
  Receive Date: 20190411
  Receipt Date: 20190411
  Transmission Date: 20190711
  Serious: No
  Sender: FDA-Public Use
  Company Number: US-BAUSCH-BL-2018-017061

PATIENT
  Sex: Male

DRUGS (2)
  1. ALREX [Suspect]
     Active Substance: LOTEPREDNOL ETABONATE
     Indication: PRODUCT USED FOR UNKNOWN INDICATION
     Dosage: 4 TIMES DAILY FOR 4 DAY
     Route: 047
     Dates: start: 20180611
  2. ALREX [Suspect]
     Active Substance: LOTEPREDNOL ETABONATE
     Dosage: 3 TIMES DAILY FOR 3 DAYS
     Route: 047
     Dates: start: 20180615

REACTIONS (2)
  - Vision blurred [Unknown]
  - Visual brightness [Unknown]

NARRATIVE: CASE EVENT DATE: 201806
